FAERS Safety Report 4289033-6 (Version None)
Quarter: 2004Q1

REPORT INFORMATION
  Report Type: 
  Country: None (occurrence: None)
  Receive Date: 20040127
  Receipt Date: 20040122
  Transmission Date: 20041129
  Serious: Yes (Hospitalization)
  Sender: FDA-Public Use
  Company Number: TOS-000604

PATIENT
  Age: 41 Year
  Sex: Female
  Weight: 75.1 kg

DRUGS (3)
  1. TOSITUMOMAB, IODINE I 131 TOSITUMOMAB (TOSITUMOMAB, IODINE I 131 TOSIT [Suspect]
     Indication: NON-HODGKIN'S LYMPHOMA
     Dosage: TOSITUMOMAB 450 MG, INTRAVENOUS; SEE IMAGE
     Route: 042
     Dates: start: 20031119, end: 20031119
  2. TOSITUMOMAB, IODINE I 131 TOSITUMOMAB (TOSITUMOMAB, IODINE I 131 TOSIT [Suspect]
     Indication: NON-HODGKIN'S LYMPHOMA
     Dosage: TOSITUMOMAB 450 MG, INTRAVENOUS; SEE IMAGE
     Route: 042
     Dates: start: 20031119, end: 20031119
  3. TOSITUMOMAB, IODINE I 131 TOSITUMOMAB (TOSITUMOMAB, IODINE I 131 TOSIT [Suspect]
     Indication: NON-HODGKIN'S LYMPHOMA
     Dosage: TOSITUMOMAB 450 MG, INTRAVENOUS; SEE IMAGE
     Route: 042
     Dates: start: 20031204, end: 20031204

REACTIONS (1)
  - ANAPHYLACTIC REACTION [None]
